FAERS Safety Report 8407316-2 (Version None)
Quarter: 2012Q2

REPORT INFORMATION
  Report Type: 
  Country: None (occurrence: None)
  Receive Date: 20120604
  Receipt Date: 20120529
  Transmission Date: 20120825
  Serious: Yes (Hospitalization, Other)
  Sender: FDA-Public Use
  Company Number: US-PFIZER INC-2012129633

PATIENT
  Sex: Female
  Weight: 45.351 kg

DRUGS (5)
  1. ATIVAN [Suspect]
     Indication: ANXIETY
     Dosage: 25MG IN MORNING AND 50MG IN EVENING
  2. LYRICA [Suspect]
     Indication: POST HERPETIC NEURALGIA
     Dosage: 50 MG, 2X/DAY
     Route: 048
     Dates: start: 20120517
  3. CIPROFLOXACIN HCL [Suspect]
     Dosage: UNK
  4. ATIVAN [Suspect]
     Dosage: 50 MG, 1X/DAY
  5. SYNTHROID [Suspect]
     Indication: THYROIDECTOMY
     Dosage: 75 UG, DAILY

REACTIONS (11)
  - EMOTIONAL DISORDER [None]
  - CONVERSION DISORDER [None]
  - VERTIGO [None]
  - INSOMNIA [None]
  - NERVOUSNESS [None]
  - COLITIS [None]
  - CANDIDIASIS [None]
  - PAIN [None]
  - VOMITING [None]
  - THYROID FUNCTION TEST ABNORMAL [None]
  - HERPES ZOSTER [None]
